FAERS Safety Report 15123321 (Version 2)
Quarter: 2018Q3

REPORT INFORMATION
  Report Type: Spontaneous
  Country: US (occurrence: US)
  Receive Date: 20180709
  Receipt Date: 20180808
  Transmission Date: 20181010
  Serious: Yes (Hospitalization, Other)
  Sender: FDA-Public Use
  Company Number: US-JAZZ-2018-US-010577

PATIENT
  Age: 50 Year
  Sex: Male
  Weight: 86.17 kg

DRUGS (7)
  1. PRAZOSIN HYDROCHLORIDE. [Concomitant]
     Active Substance: PRAZOSIN HYDROCHLORIDE
     Indication: PRODUCT USED FOR UNKNOWN INDICATION
  2. SULFASALAZINE. [Concomitant]
     Active Substance: SULFASALAZINE
     Indication: PRODUCT USED FOR UNKNOWN INDICATION
  3. LEVOTHYROXINE SODIUM. [Concomitant]
     Active Substance: LEVOTHYROXINE SODIUM
     Indication: PRODUCT USED FOR UNKNOWN INDICATION
  4. ATORVASTATIN [Concomitant]
     Active Substance: ATORVASTATIN
     Indication: PRODUCT USED FOR UNKNOWN INDICATION
  5. XYREM [Suspect]
     Active Substance: SODIUM OXYBATE
     Indication: PRODUCT USED FOR UNKNOWN INDICATION
     Route: 048
  6. LORAZEPAM. [Concomitant]
     Active Substance: LORAZEPAM
     Indication: SEDATION
  7. VERAPAMIL [Concomitant]
     Active Substance: VERAPAMIL HYDROCHLORIDE
     Indication: PRODUCT USED FOR UNKNOWN INDICATION

REACTIONS (14)
  - Hypotension [Recovering/Resolving]
  - Overdose [Unknown]
  - Irritability [Recovering/Resolving]
  - Confusional state [Recovered/Resolved]
  - Lethargy [Recovered/Resolved]
  - Coma [Recovered/Resolved]
  - Narcolepsy [Unknown]
  - Hypertension [Unknown]
  - Tachycardia [Recovering/Resolving]
  - Somnolence [Recovering/Resolving]
  - Bradycardia [Recovered/Resolved]
  - Agitation [Recovering/Resolving]
  - Anxiety [Recovering/Resolving]
  - Mental disorder [Unknown]
